FAERS Safety Report 5471571-1 (Version None)
Quarter: 2007Q3

REPORT INFORMATION
  Report Type: 
  Country: None (occurrence: None)
  Receive Date: 20070928
  Receipt Date: 20070222
  Transmission Date: 20080115
  Serious: No
  Sender: FDA-Public Use
  Company Number: US-BRISTOL-MYERS SQUIBB COMPANY-13647896

PATIENT
  Age: 76 Year
  Sex: Female
  Weight: 75 kg

DRUGS (9)
  1. DEFINITY [Suspect]
     Indication: AORTIC VALVE STENOSIS
     Dosage: 1.3 CC DEFINITY DILUTED IN NORMAL SALINE TO = 10 CC
     Route: 042
     Dates: start: 20070117, end: 20070117
  2. ASPIRIN [Concomitant]
  3. CARDIZEM [Concomitant]
  4. FUROSEMIDE [Concomitant]
  5. NITROQUICK [Concomitant]
  6. POTASSIUM CHLORIDE [Concomitant]
  7. QUINAPRIL HCL [Concomitant]
  8. ZEBETA [Concomitant]
  9. ZETIA [Concomitant]

REACTIONS (2)
  - BURNING SENSATION [None]
  - COCCYDYNIA [None]
